FAERS Safety Report 8399245-8 (Version None)
Quarter: 2012Q2

REPORT INFORMATION
  Report Type: 
  Country: None (occurrence: None)
  Receive Date: 20120531
  Receipt Date: 20120523
  Transmission Date: 20120825
  Serious: Yes (Congenital Anomaly)
  Sender: FDA-Public Use
  Company Number: US-GLAXOSMITHKLINE-A0979525A

PATIENT
  Sex: Female
  Weight: 1.9 kg

DRUGS (1)
  1. PAXIL [Suspect]
     Indication: DEPRESSION
     Dosage: 40MG PER DAY
     Route: 064
     Dates: start: 19990101

REACTIONS (3)
  - FOETAL EXPOSURE DURING PREGNANCY [None]
  - LYMPHANGIOMA [None]
  - HAEMANGIOMA [None]
